APPROVED DRUG PRODUCT: METFORMIN HYDROCHLORIDE
Active Ingredient: METFORMIN HYDROCHLORIDE
Strength: 500MG
Dosage Form/Route: TABLET, EXTENDED RELEASE;ORAL
Application: A076650 | Product #001
Applicant: PHARMOBEDIENT CONSULTING LLC
Approved: Sep 13, 2005 | RLD: No | RS: No | Type: DISCN